FAERS Safety Report 20371071 (Version 1)
Quarter: 2022Q1

REPORT INFORMATION
  Report Type: Spontaneous
  Country: CA (occurrence: CA)
  Receive Date: 20220124
  Receipt Date: 20220124
  Transmission Date: 20220423
  Serious: Yes (Other)
  Sender: FDA-Public Use
  Company Number: CA-NOVARTISPH-NVSC2022CA013237

PATIENT
  Age: 45 Year
  Sex: Male

DRUGS (3)
  1. ERELZI [Suspect]
     Active Substance: ETANERCEPT-SZZS
     Indication: Product used for unknown indication
     Dosage: 15 MG, QW2 (FOR 3 MONTHS)
     Route: 065
  2. METHOTREXATE [Suspect]
     Active Substance: METHOTREXATE
     Indication: Product used for unknown indication
     Dosage: 25 MG (FOR 7 MONTHS)
     Route: 058
  3. LEFLUNOMIDE [Concomitant]
     Active Substance: LEFLUNOMIDE
     Indication: Product used for unknown indication
     Dosage: 20 MG, QD
     Route: 065

REACTIONS (5)
  - Peritonitis [Not Recovered/Not Resolved]
  - Drug intolerance [Not Recovered/Not Resolved]
  - Product use issue [Not Recovered/Not Resolved]
  - Off label use [Not Recovered/Not Resolved]
  - Off label use [Not Recovered/Not Resolved]
